FAERS Safety Report 9120050 (Version 1)
Quarter: 2013Q1

REPORT INFORMATION
  Report Type: Spontaneous
  Country: US (occurrence: US)
  Receive Date: 20130207
  Receipt Date: 20130207
  Transmission Date: 20140127
  Serious: Yes (Other)
  Sender: FDA-Public Use
  Company Number: PHHY2013US008677

PATIENT
  Age: 53 Year
  Sex: Male

DRUGS (7)
  1. CARBAMAZEPINE [Suspect]
  2. VALPROIC ACID [Suspect]
  3. LORAZEPAM [Concomitant]
  4. PHENYTOIN [Concomitant]
  5. TOPIRAMATE [Concomitant]
  6. PROPOFOL [Concomitant]
  7. PHENOBARBITAL [Concomitant]

REACTIONS (1)
  - Status epilepticus [Unknown]
